FAERS Safety Report 6236757-7 (Version None)
Quarter: 2009Q2

REPORT INFORMATION
  Report Type: 
  Country: None (occurrence: None)
  Receive Date: 20090619
  Receipt Date: 20090612
  Transmission Date: 20091009
  Serious: Yes (Other)
  Sender: FDA-Public Use
  Company Number: PHEH2009US06314

PATIENT
  Sex: Female

DRUGS (3)
  1. RECLAST [Suspect]
     Dosage: 5 MG, UNK
     Dates: start: 20081201
  2. CALCIUM [Concomitant]
     Dosage: UNK, DAILY
  3. VITAMINS NOS [Concomitant]
     Dosage: UNK, DAILY

REACTIONS (2)
  - TOOTH DISORDER [None]
  - TOOTH INFECTION [None]
